FAERS Safety Report 18519114 (Version 1)
Quarter: 2020Q4

REPORT INFORMATION
  Report Type: Other
  Country: FR (occurrence: FR)
  Receive Date: 20201118
  Receipt Date: 20201118
  Transmission Date: 20210114
  Serious: Yes (Hospitalization, Other)
  Sender: FDA-Public Use
  Company Number: FR-SEPTODONT-202005939

PATIENT
  Age: 35 Year
  Sex: Male

DRUGS (1)
  1. RTICAINE AND ADRENALINE (CON-CENTRATION 1/100000) [Suspect]
     Active Substance: ARTICAINE HYDROCHLORIDE\EPINEPHRINE BITARTRATE
     Indication: DENTAL LOCAL ANAESTHESIA
     Route: 004

REACTIONS (7)
  - Oral mucosa haematoma [Not Recovered/Not Resolved]
  - Rash erythematous [Unknown]
  - Ecchymosis [Unknown]
  - Sinus tachycardia [Recovered/Resolved]
  - Procedural pain [Recovering/Resolving]
  - Hypertension [Recovered/Resolved]
  - Injection site bruising [Unknown]
